FAERS Safety Report 13424709 (Version 2)
Quarter: 2017Q2

REPORT INFORMATION
  Report Type: Report from Study
  Country: JP (occurrence: JP)
  Receive Date: 20170410
  Receipt Date: 20170420
  Transmission Date: 20170830
  Serious: Yes (Other)
  Sender: FDA-Public Use
  Company Number: JP-OTSUKA-2017_007908

PATIENT
  Age: 77 Year
  Sex: Female
  Weight: 41.6 kg

DRUGS (15)
  1. TOLVAPTAN [Suspect]
     Active Substance: TOLVAPTAN
     Indication: FLUID RETENTION
     Dosage: 7.5 MG, QD, IN THE MORNING
     Route: 048
     Dates: start: 20161017, end: 20170213
  2. AZOSEMIDE [Suspect]
     Active Substance: AZOSEMIDE
     Indication: FLUID RETENTION
     Dosage: 30 MG, QD
     Route: 048
     Dates: start: 20161112
  3. ALBUMIN [Concomitant]
     Active Substance: ALBUMIN HUMAN
     Dosage: 100 ML, QD
     Route: 042
     Dates: start: 20161119, end: 20161119
  4. GLYCYRON [Concomitant]
     Active Substance: AMMONIUM GLYCYRRHIZATE\GLYCINE\METHIONINE
     Indication: PRODUCT USED FOR UNKNOWN INDICATION
     Dosage: 3 DF, QD
     Route: 048
  5. FUROSEMIDE. [Concomitant]
     Active Substance: FUROSEMIDE
     Indication: FLUID RETENTION
     Dosage: 20 MG, QD
     Route: 048
     Dates: end: 20161021
  6. THYRADIN S [Concomitant]
     Active Substance: LEVOTHYROXINE SODIUM
     Indication: PRODUCT USED FOR UNKNOWN INDICATION
     Dosage: 25 ?G, QD
     Route: 048
     Dates: start: 20161027
  7. ALBUMIN [Concomitant]
     Active Substance: ALBUMIN HUMAN
     Indication: HYPOALBUMINAEMIA
     Dosage: 100 ML, QD
     Route: 042
     Dates: start: 20161021, end: 20161021
  8. ALBUMIN [Concomitant]
     Active Substance: ALBUMIN HUMAN
     Dosage: 100 ML, QD
     Route: 042
     Dates: start: 20161112, end: 20161112
  9. ALBUMIN [Concomitant]
     Active Substance: ALBUMIN HUMAN
     Indication: ELECTROLYTE SUBSTITUTION THERAPY
     Dosage: 100 ML, QD
     Route: 042
     Dates: start: 20170201, end: 20170201
  10. SPIRONOLACTONE. [Suspect]
     Active Substance: SPIRONOLACTONE
     Indication: FLUID RETENTION
     Dosage: 50 MG, QD
     Route: 048
  11. LIVACT [Concomitant]
     Active Substance: AMINO ACIDS
     Indication: PRODUCT USED FOR UNKNOWN INDICATION
     Dosage: 3 DF, QD
     Route: 048
  12. TOLVAPTAN [Suspect]
     Active Substance: TOLVAPTAN
     Indication: HEPATIC CIRRHOSIS
  13. URSO [Concomitant]
     Active Substance: URSODIOL
     Indication: PRODUCT USED FOR UNKNOWN INDICATION
     Dosage: 300 MG, QD
     Route: 048
  14. FLUITRAN [Concomitant]
     Active Substance: TRICHLORMETHIAZIDE
     Indication: FLUID RETENTION
     Dosage: 2 MG, QD
     Route: 048
     Dates: end: 20161014
  15. HUSCODE [Concomitant]
     Active Substance: CHLORPHENIRAMINE MALEAT\DIHYDROCODEINE PHOSPHATE\METHYLEPHEDRINE HYDROCHLORIDE, DL-
     Indication: PRODUCT USED FOR UNKNOWN INDICATION
     Dosage: 2 DF, QD
     Route: 048
     Dates: end: 20161019

REACTIONS (2)
  - Drug effect incomplete [Unknown]
  - Hepatic encephalopathy [Recovering/Resolving]

NARRATIVE: CASE EVENT DATE: 20170209
